FAERS Safety Report 7914615-7 (Version None)
Quarter: 2011Q4

REPORT INFORMATION
  Report Type: 
  Country: None (occurrence: None)
  Receive Date: 20111115
  Receipt Date: 20111107
  Transmission Date: 20120403
  Serious: Yes (Death, Hospitalization, Other)
  Sender: FDA-Public Use
  Company Number: PHHY2011JP099128

PATIENT
  Sex: Female

DRUGS (4)
  1. DOPS [Concomitant]
     Dosage: UNK UKN, UNK
     Route: 048
     Dates: start: 20020101
  2. VALSARTAN [Suspect]
     Indication: HYPERTENSION
     Dosage: 80 MG, QD
     Route: 048
     Dates: start: 20081112
  3. E C DOPAL [Concomitant]
     Dosage: UNK UKN, UNK
     Route: 048
     Dates: start: 20020101
  4. SYMMETREL [Concomitant]
     Dosage: UNK UKN, UNK
     Route: 048
     Dates: start: 20020101

REACTIONS (3)
  - RENAL FAILURE CHRONIC [None]
  - GENERAL PHYSICAL HEALTH DETERIORATION [None]
  - HEART RATE INCREASED [None]
